FAERS Safety Report 5248028-6 (Version None)
Quarter: 2007Q1

REPORT INFORMATION
  Report Type: 
  Country: None (occurrence: None)
  Receive Date: 20070222
  Receipt Date: 20070213
  Transmission Date: 20070707
  Serious: Yes (Hospitalization)
  Sender: FDA-Public Use
  Company Number: S06-ESP-04202-01

PATIENT
  Age: 45 Year
  Sex: Female

DRUGS (5)
  1. CIPRALEX (ESCITALOPRAM) [Suspect]
     Indication: DEPRESSION
     Dosage: 20 MG QD PO
     Route: 048
     Dates: start: 20051013
  2. CIPRALEX (ESCITALOPRAM) [Suspect]
     Indication: DEPRESSION
     Dosage: 20 MG QD PO
     Route: 048
     Dates: start: 20061023, end: 20070112
  3. OXCARBAMAZEPINE (OXCARBAMAZEPINE) [Suspect]
     Indication: IMPULSE-CONTROL DISORDER
     Dates: start: 20060706
  4. ANTABUS (DISULFIRAM) [Concomitant]
  5. CLORAZEPATE DIPOTASSIUM [Concomitant]

REACTIONS (3)
  - ASTHENIA [None]
  - DRUG INTERACTION [None]
  - HYPONATRAEMIA [None]
